FAERS Safety Report 19979330 (Version 1)
Quarter: 2021Q4

REPORT INFORMATION
  Report Type: Spontaneous
  Country: ES (occurrence: ES)
  Receive Date: 20211021
  Receipt Date: 20211021
  Transmission Date: 20220303
  Serious: Yes (Other)
  Sender: FDA-Public Use
  Company Number: ES-ABBVIE-21K-144-4129341-00

PATIENT
  Age: 11 Year
  Sex: Female

DRUGS (1)
  1. VALPROATE SODIUM [Suspect]
     Active Substance: VALPROATE SODIUM
     Indication: Bipolar disorder
     Route: 048

REACTIONS (4)
  - Menopause [Not Recovered/Not Resolved]
  - Oesophagitis [Not Recovered/Not Resolved]
  - Dermal cyst [Not Recovered/Not Resolved]
  - Dry mouth [Not Recovered/Not Resolved]
